FAERS Safety Report 5156307-6 (Version None)
Quarter: 2006Q4

REPORT INFORMATION
  Report Type: 
  Country: None (occurrence: None)
  Receive Date: 20061122
  Receipt Date: 20041203
  Transmission Date: 20070319
  Serious: Yes (Hospitalization, Other)
  Sender: FDA-Public Use
  Company Number: GB-GLAXOSMITHKLINE-B0359478A

PATIENT
  Sex: Female

DRUGS (4)
  1. SEROXAT [Suspect]
     Indication: PREMENSTRUAL SYNDROME
     Dosage: 20MG PER DAY
     Dates: start: 19990101, end: 20030101
  2. ALCOHOL [Concomitant]
  3. LIBRIUM [Concomitant]
  4. ANTABUSE [Concomitant]

REACTIONS (5)
  - ABNORMAL BEHAVIOUR [None]
  - COMPLETED SUICIDE [None]
  - DRUG WITHDRAWAL SYNDROME [None]
  - INTENTIONAL OVERDOSE [None]
  - SUICIDAL IDEATION [None]
